FAERS Safety Report 21293636 (Version 2)
Quarter: 2022Q4

REPORT INFORMATION
  Report Type: Report from Study
  Country: FR (occurrence: None)
  Receive Date: 20220905
  Receipt Date: 20221006
  Transmission Date: 20230112
  Serious: Yes (Death, Hospitalization)
  Sender: FDA-Public Use
  Company Number: 2022A302517

PATIENT
  Age: 27752 Day
  Sex: Female
  Weight: 65 kg

DRUGS (12)
  1. EVUSHELD [Suspect]
     Active Substance: CILGAVIMAB\TIXAGEVIMAB
     Indication: COVID-19
     Dosage: ONCE/SINGLE ADMINISTRATION
     Route: 030
     Dates: start: 20220210
  2. BROMAZEPAM [Concomitant]
     Active Substance: BROMAZEPAM
  3. APIXABAN [Concomitant]
     Active Substance: APIXABAN
  4. LEVOTHYROXINE [Concomitant]
     Active Substance: LEVOTHYROXINE
     Dosage: 125.0UG UNKNOWN
  5. OROCAL [Concomitant]
     Dosage: 500.0MG UNKNOWN
  6. ROSUVASTATIN [Concomitant]
     Active Substance: ROSUVASTATIN
  7. PANTOPRAZOLE [Concomitant]
     Active Substance: PANTOPRAZOLE
     Dosage: 20.0MG UNKNOWN
  8. FELODIPINE [Concomitant]
     Active Substance: FELODIPINE
     Dosage: 5.0MG UNKNOWN
  9. ENALAPRIL [Concomitant]
     Active Substance: ENALAPRIL
     Dosage: 20.0MG UNKNOWN
  10. NEBIVOLOL [Concomitant]
     Active Substance: NEBIVOLOL
     Dosage: 5.0MG UNKNOWN
  11. IRBESARTAN [Concomitant]
     Active Substance: IRBESARTAN
  12. PREDNISONE [Concomitant]
     Active Substance: PREDNISONE
     Dosage: 10.0MG UNKNOWN

REACTIONS (5)
  - Cardiac failure [Fatal]
  - Atrial fibrillation [Fatal]
  - Streptococcal sepsis [Fatal]
  - Pneumothorax [Fatal]
  - Legionella infection [Fatal]

NARRATIVE: CASE EVENT DATE: 20220509
